FAERS Safety Report 10405721 (Version 3)
Quarter: 2015Q2

REPORT INFORMATION
  Report Type: Spontaneous
  Country: GB (occurrence: GB)
  Receive Date: 20140825
  Receipt Date: 20150423
  Transmission Date: 20150821
  Serious: Yes (Hospitalization)
  Sender: FDA-Public Use
  Company Number: GB-JNJFOC-20140819839

PATIENT
  Age: 4 Year
  Sex: Male

DRUGS (2)
  1. CALPOL [Suspect]
     Active Substance: ACETAMINOPHEN
     Indication: ACCIDENTAL EXPOSURE TO PRODUCT
     Route: 065
  2. CALPOL [Suspect]
     Active Substance: ACETAMINOPHEN
     Route: 065

REACTIONS (2)
  - Product closure issue [Unknown]
  - Accidental exposure to product [Unknown]
